FAERS Safety Report 10031029 (Version 1)
Quarter: 2014Q1

REPORT INFORMATION
  Report Type: Report from Study
  Country: US (occurrence: US)
  Receive Date: 20140324
  Receipt Date: 20140324
  Transmission Date: 20141002
  Serious: Yes (Death)
  Sender: FDA-Public Use
  Company Number: US-ROCHE-1353044

PATIENT
  Sex: Female

DRUGS (6)
  1. AVASTIN [Suspect]
     Indication: BILE DUCT CANCER
     Route: 065
     Dates: start: 20110729
  2. AVASTIN [Suspect]
     Indication: METASTASES TO GASTROINTESTINAL TRACT
     Route: 065
     Dates: start: 20110812
  3. AVASTIN [Suspect]
     Indication: MALIGNANT SPLENIC NEOPLASM
  4. TARCEVA [Suspect]
     Indication: BILE DUCT CANCER
     Route: 065
  5. TARCEVA [Suspect]
     Indication: PANCREATIC CARCINOMA
  6. COUMADIN [Concomitant]

REACTIONS (2)
  - Death [Fatal]
  - Off label use [Unknown]
